FAERS Safety Report 4490508-5 (Version None)
Quarter: 2004Q4

REPORT INFORMATION
  Report Type: 
  Country: None (occurrence: None)
  Receive Date: 20041028
  Receipt Date: 20041014
  Transmission Date: 20050328
  Serious: No
  Sender: FDA-Public Use
  Company Number: DSA_25182_2004

PATIENT
  Age: 50 Year
  Sex: Female
  Weight: 61.6892 kg

DRUGS (1)
  1. ATIVAN [Suspect]
     Indication: NERVOUSNESS
     Dosage: 1 MG TID PO
     Route: 048
     Dates: start: 19800101

REACTIONS (3)
  - BREAST CANCER FEMALE [None]
  - MEMORY IMPAIRMENT [None]
  - VISION BLURRED [None]
